FAERS Safety Report 19095150 (Version 2)
Quarter: 2021Q2

REPORT INFORMATION
  Report Type: Report from Study
  Country: None (occurrence: PR)
  Receive Date: 20210405
  Receipt Date: 20210423
  Transmission Date: 20210717
  Serious: Yes (Other)
  Sender: FDA-Public Use
  Company Number: PR-ABBVIE-21K-131-3820493-00

PATIENT
  Age: 24 Year
  Sex: Female
  Weight: 52.66 kg

DRUGS (2)
  1. HUMIRA [Suspect]
     Active Substance: ADALIMUMAB
     Route: 058
  2. HUMIRA [Suspect]
     Active Substance: ADALIMUMAB
     Indication: HIDRADENITIS
     Route: 058
     Dates: start: 201907, end: 202103

REACTIONS (2)
  - Cyst [Recovered/Resolved]
  - Infected cyst [Recovered/Resolved]

NARRATIVE: CASE EVENT DATE: 202012
